FAERS Safety Report 14434614 (Version 7)
Quarter: 2018Q1

REPORT INFORMATION
  Report Type: Spontaneous
  Country: US (occurrence: US)
  Receive Date: 20180124
  Receipt Date: 20180327
  Transmission Date: 20180509
  Serious: Yes (Death, Other)
  Sender: FDA-Public Use
  Company Number: US-BIOGEN-2018BI00513191

PATIENT
  Age: 39 Year
  Sex: Male

DRUGS (1)
  1. TYSABRI [Suspect]
     Active Substance: NATALIZUMAB
     Indication: MULTIPLE SCLEROSIS
     Route: 042
     Dates: start: 20101118, end: 20171215

REACTIONS (13)
  - Weight increased [Not Recovered/Not Resolved]
  - Respiratory arrest [Fatal]
  - Asthenia [Unknown]
  - Confusional state [Recovered/Resolved]
  - Cough [Not Recovered/Not Resolved]
  - Respiratory tract congestion [Unknown]
  - Visual impairment [Unknown]
  - Aphasia [Not Recovered/Not Resolved]
  - Multiple sclerosis [Fatal]
  - Blindness [Unknown]
  - Balance disorder [Unknown]
  - Thinking abnormal [Unknown]
  - Dehydration [Recovered/Resolved]

NARRATIVE: CASE EVENT DATE: 20180112
